FAERS Safety Report 12144407 (Version 4)
Quarter: 2016Q3

REPORT INFORMATION
  Report Type: Spontaneous
  Country: US (occurrence: US)
  Receive Date: 20160304
  Receipt Date: 20160708
  Transmission Date: 20161109
  Serious: No
  Sender: FDA-Public Use
  Company Number: US-PFIZER INC-2016114208

PATIENT
  Age: 59 Year
  Sex: Female
  Weight: 79 kg

DRUGS (14)
  1. IBRANCE [Suspect]
     Active Substance: PALBOCICLIB
     Indication: BREAST CANCER STAGE IV
     Dosage: 75 MG, CYCLIC (21 DAYS ON AND 7 DAYS OFF)
     Route: 048
     Dates: start: 20160210
  2. IBRANCE [Suspect]
     Active Substance: PALBOCICLIB
     Indication: BREAST CANCER
     Dosage: UNK
  3. IBRANCE [Suspect]
     Active Substance: PALBOCICLIB
     Dosage: UNK
  4. NOVOLOG [Concomitant]
     Active Substance: INSULIN ASPART
     Indication: DIABETES MELLITUS
     Dosage: 35 IU, 3X/DAY
     Dates: start: 20150915
  5. AROMASIN [Concomitant]
     Active Substance: EXEMESTANE
     Indication: OESTROGEN RECEPTOR POSITIVE BREAST CANCER
     Dosage: 25 MG, 1X/DAY
  6. NORCO [Concomitant]
     Active Substance: ACETAMINOPHEN\HYDROCODONE BITARTRATE
     Indication: PAIN
     Dosage: TAKES 5MG AND 325 ACETAMINE (UNITS NOT PROVIDED)
  7. IBRANCE [Suspect]
     Active Substance: PALBOCICLIB
     Dosage: 75 MG, UNK
     Dates: start: 20160601
  8. LETROZOLE. [Concomitant]
     Active Substance: LETROZOLE
     Indication: BLOOD OESTROGEN INCREASED
     Dosage: 2.5 MG, 1X/DAY
     Dates: start: 20160210, end: 20160310
  9. PANTOPRAZOLE [Concomitant]
     Active Substance: PANTOPRAZOLE SODIUM
     Indication: ANTACID THERAPY
     Dosage: 40 MG, 2X/DAY
  10. IBRANCE [Suspect]
     Active Substance: PALBOCICLIB
     Dosage: UNK
  11. LEVEMIR [Concomitant]
     Active Substance: INSULIN DETEMIR
     Indication: DIABETES MELLITUS
     Dosage: 45 UNITS, 2X/DAY
     Dates: start: 20150915
  12. AMLODIPINE BESYLATE. [Concomitant]
     Active Substance: AMLODIPINE BESYLATE
     Indication: HYPERTENSION
     Dosage: 10 MG, 1X/DAY
     Dates: start: 20160115
  13. CLONIDINE. [Concomitant]
     Active Substance: CLONIDINE
     Indication: HYPERTENSION
     Dosage: 0.1 MG, 2X/DAY, EVERY 12 HOURS
     Dates: start: 20160115
  14. AROMASIN [Concomitant]
     Active Substance: EXEMESTANE
     Dosage: 25 UNK, UNK
     Route: 048
     Dates: start: 20160310

REACTIONS (5)
  - Fatigue [Recovered/Resolved]
  - Alopecia [Not Recovered/Not Resolved]
  - Depression [Recovered/Resolved]
  - Nephropathy [Unknown]
  - Burning sensation [Unknown]

NARRATIVE: CASE EVENT DATE: 20160220
